FAERS Safety Report 10387667 (Version 1)
Quarter: 2014Q3

REPORT INFORMATION
  Report Type: Spontaneous
  Country: CN (occurrence: CN)
  Receive Date: 20140815
  Receipt Date: 20140815
  Transmission Date: 20150326
  Serious: Yes (Other)
  Sender: FDA-Public Use
  Company Number: CN-JNJFOC-20140812799

PATIENT
  Age: 21 Year
  Sex: Male

DRUGS (1)
  1. NIZORAL [Suspect]
     Active Substance: KETOCONAZOLE
     Indication: BODY TINEA
     Route: 048
     Dates: start: 20131029, end: 20131029

REACTIONS (7)
  - Hypoaesthesia [Recovering/Resolving]
  - Skin warm [Recovering/Resolving]
  - Choking sensation [Recovering/Resolving]
  - Pruritus generalised [Recovering/Resolving]
  - Erythema [Recovering/Resolving]
  - Pyrexia [Recovering/Resolving]
  - Chills [Recovering/Resolving]

NARRATIVE: CASE EVENT DATE: 20131029
